FAERS Safety Report 23093000 (Version 2)
Quarter: 2024Q4

REPORT INFORMATION
  Report Type: Spontaneous
  Country: GB (occurrence: GB)
  Receive Date: 20231021
  Receipt Date: 20241108
  Transmission Date: 20250114
  Serious: Yes (Hospitalization, Other)
  Sender: TEVA
  Company Number: GB-ROCHE-2655907

PATIENT
  Age: 73 Year
  Sex: Female
  Weight: 47 kg

DRUGS (102)
  1. PREDNISOLONE [Suspect]
     Active Substance: PREDNISOLONE
     Indication: Follicular lymphoma
     Dosage: MOST RECENT DOSE PRIOR TO BOTH AE: 02/AUG/2020?MOST RECENT DOSE OF PREDNISOLONE PRIOR TO CRS (FIR...
     Route: 048
     Dates: start: 20200731
  2. PREDNISOLONE [Suspect]
     Active Substance: PREDNISOLONE
     Indication: Follicular lymphoma
     Dosage: MOST RECENT DOSE (50 MG) PRIOR TO BOTH AE: 02/AUG/2020,MOST RECENT DOSE OF PREDNISOLONE (50 MG) P...
     Route: 048
     Dates: start: 20200708
  3. PREDNISOLONE [Suspect]
     Active Substance: PREDNISOLONE
     Indication: Follicular lymphoma
     Route: 065
     Dates: start: 20200802
  4. PREDNISOLONE [Suspect]
     Active Substance: PREDNISOLONE
     Indication: Follicular lymphoma
     Route: 065
     Dates: start: 20200701
  5. CYCLOPHOSPHAMIDE [Suspect]
     Active Substance: CYCLOPHOSPHAMIDE
     Indication: Follicular lymphoma
     Dosage: DOSAGE TEXT: DATE OF THE MOST RECENT DOSE PRIOR TO FEBRILE NEUTROPENIA, ALANINE AMINO TRANSFERASE...
     Route: 042
     Dates: start: 20200708
  6. CYCLOPHOSPHAMIDE [Suspect]
     Active Substance: CYCLOPHOSPHAMIDE
     Indication: Follicular lymphoma
     Dosage: 750 MG/M2, BATCH NO : 1.13286635.4
     Route: 065
     Dates: start: 20200729
  7. CYCLOPHOSPHAMIDE [Suspect]
     Active Substance: CYCLOPHOSPHAMIDE
     Indication: Follicular lymphoma
     Dosage: BATCH NO : 1.13286635.4,1.114955806.4,1.115939
     Route: 065
  8. ALLOPURINOL [Concomitant]
     Active Substance: ALLOPURINOL
     Indication: Tumour lysis syndrome
     Dosage: DURATION: 18 DAYS
     Dates: start: 20200720, end: 20200806
  9. ALLOPURINOL [Concomitant]
     Active Substance: ALLOPURINOL
     Indication: Tumour lysis syndrome
     Dosage: 300 MG
     Dates: start: 20200710
  10. CALCIUM [Concomitant]
     Active Substance: CALCIUM
     Indication: Product used for unknown indication
     Dates: start: 2018
  11. CHLORPHENIRAMINE MALEATE [Concomitant]
     Active Substance: CHLORPHENIRAMINE MALEATE
     Indication: Prophylaxis
     Dosage: DURATION: 1 DAYS
     Route: 042
     Dates: start: 20200729, end: 20200729
  12. CHLORPHENIRAMINE MALEATE [Concomitant]
     Active Substance: CHLORPHENIRAMINE MALEATE
     Indication: Prophylaxis
     Dosage: DURATION: 1 DAYS
     Route: 042
     Dates: start: 20200923, end: 20200923
  13. CHLORPHENIRAMINE MALEATE [Concomitant]
     Active Substance: CHLORPHENIRAMINE MALEATE
     Indication: Prophylaxis
     Dosage: DURATION: 32 DAYS
     Route: 042
     Dates: start: 20200729, end: 20200829
  14. CHLORPHENIRAMINE MALEATE [Concomitant]
     Active Substance: CHLORPHENIRAMINE MALEATE
     Indication: Prophylaxis
     Dosage: NEXT SINGLE DOSE ON: 08/AUG/2020,  DURATION: 1 DAYS
     Route: 042
     Dates: start: 20200805, end: 20200805
  15. CHLORPHENIRAMINE MALEATE [Concomitant]
     Active Substance: CHLORPHENIRAMINE MALEATE
     Indication: Prophylaxis
     Dosage: DURATION: 1 DAYS
     Route: 042
     Dates: start: 20201014, end: 20201014
  16. CHLORPHENIRAMINE MALEATE [Concomitant]
     Active Substance: CHLORPHENIRAMINE MALEATE
     Indication: Prophylaxis
     Dosage: NEXT SINGLE DOSE ON: 08/AUG/2020;  DURATION: 1 DAYS
     Route: 042
     Dates: start: 20200902, end: 20200902
  17. CHLORPHENIRAMINE MALEATE [Concomitant]
     Active Substance: CHLORPHENIRAMINE MALEATE
     Indication: Prophylaxis
     Dosage: DURATION: 1 DAYS
     Route: 042
     Dates: start: 20201111, end: 20201111
  18. CHLORPHENIRAMINE MALEATE [Concomitant]
     Active Substance: CHLORPHENIRAMINE MALEATE
     Indication: Prophylaxis
     Dosage: NEXT SINGLE DOSE ON: 08/AUG/2020;  DURATION: 1 DAYS
     Route: 042
     Dates: start: 20200808, end: 20200808
  19. CHLORPHENIRAMINE MALEATE [Concomitant]
     Active Substance: CHLORPHENIRAMINE MALEATE
     Indication: Prophylaxis
     Dosage: DURATION: 1 DAYS
     Route: 042
     Dates: start: 20200826, end: 20200826
  20. CHLORPHENIRAMINE MALEATE [Concomitant]
     Active Substance: CHLORPHENIRAMINE MALEATE
     Indication: Prophylaxis
     Dosage: DURATION: 1 DAYS
     Route: 042
     Dates: start: 20200930, end: 20200930
  21. CHLORPHENIRAMINE MALEATE [Concomitant]
     Active Substance: CHLORPHENIRAMINE MALEATE
     Indication: Prophylaxis
     Dosage: DURATION: 1 DAYS
     Route: 042
     Dates: start: 20201104, end: 20201104
  22. AMOXICILLIN\CLAVULANATE POTASSIUM [Concomitant]
     Active Substance: AMOXICILLIN\CLAVULANATE POTASSIUM
     Indication: Pyrexia
     Dosage: DURATION: 5 DAYS
     Dates: start: 20200719, end: 20200723
  23. DEXAMETHASONE [Concomitant]
     Active Substance: DEXAMETHASONE
     Indication: Product used for unknown indication
     Dosage: DURATION: 1 DAYS
     Route: 042
     Dates: start: 20200930, end: 20200930
  24. DOMPERIDONE [Concomitant]
     Active Substance: DOMPERIDONE
     Indication: Prophylaxis of nausea and vomiting
     Dosage: UNK
     Dates: start: 20201001
  25. DOMPERIDONE [Concomitant]
     Active Substance: DOMPERIDONE
     Indication: Prophylaxis of nausea and vomiting
     Dosage: 10 MG
     Dates: start: 20200708
  26. ENOXAPARIN [Concomitant]
     Active Substance: ENOXAPARIN
     Indication: Embolism
     Dosage: DURATION: 30 DAYS
     Dates: start: 20200728, end: 20200826
  27. FILGRASTIM [Concomitant]
     Active Substance: FILGRASTIM
     Indication: Neutropenia
     Dosage: ONGOING: NO; DURATION: 1 DAYS
     Dates: start: 20200718, end: 20200718
  28. FILGRASTIM [Concomitant]
     Active Substance: FILGRASTIM
     Indication: Neutropenia
     Dosage: 300 MG
     Dates: start: 20200713
  29. CALCIUM CHLORIDE\POTASSIUM CHLORIDE\SODIUM CHLORIDE\SODIUM LACTATE [Concomitant]
     Active Substance: CALCIUM CHLORIDE\POTASSIUM CHLORIDE\SODIUM CHLORIDE\SODIUM LACTATE
     Indication: Pyrexia
     Dosage: DURATION: 2 DAYS
     Dates: start: 20200715, end: 20200716
  30. HYDROCORTISONE [Concomitant]
     Active Substance: HYDROCORTISONE
     Indication: Pyrexia
     Route: 042
  31. HYDROCORTISONE [Concomitant]
     Active Substance: HYDROCORTISONE
     Indication: Pyrexia
     Dosage: UNK, DURATION: 1 DAYS
     Dates: start: 20200805, end: 20200805
  32. DOXORUBICIN [Suspect]
     Active Substance: DOXORUBICIN
     Indication: Follicular lymphoma
     Dosage: DOSAGE TEXT: DATE OF THE MOST RECENT DOSE PRIOR TO FEBRILE NEUTROPENIA, ALANINE AMINO TRANSFERASE...
     Route: 042
     Dates: start: 20200708
  33. DOXORUBICIN [Suspect]
     Active Substance: DOXORUBICIN
     Indication: Follicular lymphoma
     Dosage: BATCH/LOT NUMBER : 1.114955805.4
     Route: 042
  34. DOXORUBICIN [Suspect]
     Active Substance: DOXORUBICIN
     Indication: Follicular lymphoma
     Dosage: BATCH NO : 1.13286634.4,1.114955805.4,1.115939
     Route: 065
  35. DOXORUBICIN [Suspect]
     Active Substance: DOXORUBICIN
     Indication: Follicular lymphoma
     Dosage: DATE OF THE MOST RECENT DOSE PRIOR TO FEBRILE NEUTROPENIA, ALANINE AMINO TRANSFERASE ELEVATED AND...
     Route: 042
     Dates: start: 20200729
  36. DOXORUBICIN [Suspect]
     Active Substance: DOXORUBICIN
     Indication: Follicular lymphoma
     Dosage: START DATE OF MOST RECENT DOSE OF DOXORUBICIN ADMINISTRED PRIOR AE WAS 36 MG/M2 ON 14/AUG/2020 AT...
     Route: 042
  37. DOXORUBICIN [Suspect]
     Active Substance: DOXORUBICIN
     Indication: Follicular lymphoma
     Dosage: BATCH NO : 1.115939877.7
     Route: 042
  38. DOXORUBICIN [Suspect]
     Active Substance: DOXORUBICIN
     Indication: Follicular lymphoma
     Dosage: BATCH NO : 1.117448613.4
     Route: 042
  39. DOXORUBICIN [Suspect]
     Active Substance: DOXORUBICIN
     Indication: Follicular lymphoma
     Dosage: BATCH NO : 1.13286634.4
     Route: 042
  40. IBUPROFEN [Concomitant]
     Active Substance: IBUPROFEN
     Indication: Back pain
     Dosage: DURATION: 9 DAYS
     Dates: start: 20201003, end: 20201011
  41. LANSOPRAZOLE [Concomitant]
     Active Substance: LANSOPRAZOLE
     Indication: Gastrointestinal disorder prophylaxis
     Dates: start: 202003
  42. SODIUM CHLORIDE [Concomitant]
     Active Substance: SODIUM CHLORIDE
     Indication: Cytokine release syndrome
     Dosage: UNK, DURATION: 2 DAYS
     Dates: start: 20200805, end: 20200806
  43. MOMETASONE [Concomitant]
     Active Substance: MOMETASONE
     Indication: Product used for unknown indication
     Dosage: UNK
     Dates: start: 202003
  44. MORPHINE SULFATE [Concomitant]
     Active Substance: MORPHINE SULFATE
     Indication: Pain in extremity
     Dosage: DURATION: 4 DAYS
     Route: 048
     Dates: start: 20201007, end: 20201010
  45. MORPHINE SULFATE [Concomitant]
     Active Substance: MORPHINE SULFATE
     Indication: Pain in extremity
     Dosage: DURATION: 7 DAYS
     Route: 048
     Dates: start: 20201001, end: 20201007
  46. ONDANSETRON [Concomitant]
     Active Substance: ONDANSETRON
     Indication: Prophylaxis of nausea and vomiting
     Dosage: UNK
     Dates: start: 20200708
  47. ONDANSETRON [Concomitant]
     Active Substance: ONDANSETRON
     Indication: Prophylaxis of nausea and vomiting
     Dosage: UNK
     Dates: start: 20201001
  48. OXYGEN [Concomitant]
     Active Substance: OXYGEN
     Indication: Hypoxia
     Dosage: DURATION: 2 DAYS
     Dates: start: 20201001, end: 20201002
  49. OXYGEN [Concomitant]
     Active Substance: OXYGEN
     Indication: Hypoxia
     Dosage: DURATION: 1 DAYS
     Dates: start: 20200903, end: 20200903
  50. OXYGEN [Concomitant]
     Active Substance: OXYGEN
     Indication: Hypoxia
     Dosage: DURATION: 1 DAYS
     Dates: start: 20201001, end: 20201001
  51. ACETAMINOPHEN [Concomitant]
     Active Substance: ACETAMINOPHEN
     Indication: Pyrexia
     Dosage: DURATION: 1 DAYS
     Route: 048
     Dates: start: 20201104, end: 20201104
  52. ACETAMINOPHEN [Concomitant]
     Active Substance: ACETAMINOPHEN
     Indication: Pyrexia
     Dosage: NEXT SINGLE DOSE ON 08/AUG/2020; DURATION: 1 DAYS
     Route: 048
     Dates: start: 20200805, end: 20200805
  53. ACETAMINOPHEN [Concomitant]
     Active Substance: ACETAMINOPHEN
     Indication: Pyrexia
     Dosage: UNK, DURATION : 3 DAYS
     Dates: start: 20200805, end: 20200807
  54. ACETAMINOPHEN [Concomitant]
     Active Substance: ACETAMINOPHEN
     Indication: Pyrexia
     Dosage: UNK
     Dates: start: 20200805
  55. ACETAMINOPHEN [Concomitant]
     Active Substance: ACETAMINOPHEN
     Indication: Pyrexia
     Dosage: DOSAGE TEXT: UNIT DOSE: 1000MG, DURATION: 1 DAYS
     Route: 048
     Dates: start: 20200808, end: 20200808
  56. ACETAMINOPHEN [Concomitant]
     Active Substance: ACETAMINOPHEN
     Indication: Pyrexia
     Dosage: DOSAGE TEXT: UNIT DOSE: 1000MG, DURATION: 1 DAYS
     Route: 048
     Dates: start: 20200923, end: 20200923
  57. ACETAMINOPHEN [Concomitant]
     Active Substance: ACETAMINOPHEN
     Indication: Pyrexia
     Dosage: DURATION: 6 DAYS
     Dates: start: 20200715, end: 20200720
  58. ACETAMINOPHEN [Concomitant]
     Active Substance: ACETAMINOPHEN
     Indication: Pyrexia
     Dosage: DURATION: 1 DAYS
     Route: 048
     Dates: start: 20201111, end: 20201111
  59. ACETAMINOPHEN [Concomitant]
     Active Substance: ACETAMINOPHEN
     Indication: Pyrexia
     Dosage: UNK, DURATION: 3 DAYS
     Dates: start: 20200805, end: 20200807
  60. ACETAMINOPHEN [Concomitant]
     Active Substance: ACETAMINOPHEN
     Indication: Pyrexia
     Dosage: DURATION: 1 DAYS
     Dates: start: 20201001, end: 20201001
  61. ACETAMINOPHEN [Concomitant]
     Active Substance: ACETAMINOPHEN
     Indication: Pyrexia
     Dosage: ONGOING: YES,
     Dates: start: 20201001
  62. ACETAMINOPHEN [Concomitant]
     Active Substance: ACETAMINOPHEN
     Indication: Pyrexia
     Dosage: DOSAGE TEXT: UNIT DOSE: 1000MG, DURATION: 1 DAYS
     Route: 048
     Dates: start: 20200902, end: 20200902
  63. ACETAMINOPHEN [Concomitant]
     Active Substance: ACETAMINOPHEN
     Indication: Pyrexia
     Dosage: DURATION: 1 DAYS
     Route: 048
     Dates: start: 20200930, end: 20200930
  64. ACETAMINOPHEN [Concomitant]
     Active Substance: ACETAMINOPHEN
     Indication: Pyrexia
     Dosage: DURATION: 1 DAYS
     Route: 048
     Dates: start: 20201014, end: 20201014
  65. ACETAMINOPHEN [Concomitant]
     Active Substance: ACETAMINOPHEN
     Indication: Pyrexia
     Dosage: DOSAGE TEXT: UNIT DOSE: 1000MG, DURATION: 1 DAYS
     Route: 048
     Dates: start: 20200826, end: 20200826
  66. ACETAMINOPHEN [Concomitant]
     Active Substance: ACETAMINOPHEN
     Indication: Pyrexia
     Dosage: DURATION: 1 DAYS
     Route: 048
     Dates: start: 20200729, end: 20200729
  67. BENDAMUSTINE [Concomitant]
     Active Substance: BENDAMUSTINE
     Indication: Product used for unknown indication
     Dosage: UNK
  68. RASBURICASE [Concomitant]
     Active Substance: RASBURICASE
     Indication: Prophylaxis
     Dosage: DURATION: 2 DAYS
     Dates: start: 20200708, end: 20200709
  69. GLOFITAMAB [Suspect]
     Active Substance: GLOFITAMAB
     Indication: Follicular lymphoma
     Dosage: DOSAGE TEXT: MOST RECENT DOSE OF RO7082859, 0.5 MG (TOTAL VOLUME 25ML) PRIOR TO NEUTROPENIA: 02/S...
     Route: 042
     Dates: start: 20200805
  70. GLOFITAMAB [Suspect]
     Active Substance: GLOFITAMAB
     Indication: Follicular lymphoma
     Dosage: BATCH NO : 1.113286649.4
     Route: 042
  71. GLOFITAMAB [Suspect]
     Active Substance: GLOFITAMAB
     Indication: Follicular lymphoma
     Dosage: BATCH NO: 111948,1.113286649.4
     Route: 065
  72. GLOFITAMAB [Suspect]
     Active Substance: GLOFITAMAB
     Indication: Follicular lymphoma
     Dosage: MOST RECENT DOSE OF RO7082859 (TOTAL VOLUME 25ML) PRIOR TO NEUTROPENIA: 02/SEP/2020 AT 2:00 PM- E...
     Route: 042
  73. RIVAROXABAN [Concomitant]
     Active Substance: RIVAROXABAN
     Indication: Embolism
     Dosage: DURATION: 157 DAYS
     Dates: start: 20200826, end: 20210129
  74. RITUXIMAB [Suspect]
     Active Substance: RITUXIMAB
     Indication: Follicular lymphoma
     Dosage: DOSAGE TEXT: MOST RECENT DOSE OF RITUXIMAB PRIOR TO FEBRILE NEUTROPENIA, ALANINE AMINO TRANSFERAS...
     Route: 041
     Dates: start: 20200708
  75. RITUXIMAB [Suspect]
     Active Substance: RITUXIMAB
     Indication: Follicular lymphoma
     Dosage: MOST RECENT DOSE (305 ML) OF RITUXIMAB PRIOR TO FEBRILE NEUTROPENIA, ALANINE AMINO TRANSFERASE EL...
     Route: 065
     Dates: start: 20200729
  76. RITUXIMAB [Suspect]
     Active Substance: RITUXIMAB
     Indication: Follicular lymphoma
     Route: 065
  77. RITUXIMAB [Suspect]
     Active Substance: RITUXIMAB
     Indication: Follicular lymphoma
     Route: 065
  78. RITUXIMAB [Suspect]
     Active Substance: RITUXIMAB
     Indication: Follicular lymphoma
     Dosage: BATCH NO : N7379,N7379B09
     Route: 065
  79. RITUXIMAB [Suspect]
     Active Substance: RITUXIMAB
     Indication: Follicular lymphoma
     Route: 065
  80. TOCILIZUMAB [Suspect]
     Active Substance: TOCILIZUMAB
     Indication: Cytokine release syndrome
     Dosage: TIME INTERVAL: AS NECESSARY: DOSAGE TEXT: START DATE OF MOST RECENT DOSE OF STUDY DRUG PRIOR TO S...
     Route: 042
     Dates: start: 20201001
  81. TOCILIZUMAB [Suspect]
     Active Substance: TOCILIZUMAB
     Indication: Cytokine release syndrome
     Dosage: TIME INTERVAL: AS NECESSARY: DURATION: 1 DAYS
     Route: 042
     Dates: start: 20201002, end: 20201002
  82. TOCILIZUMAB [Suspect]
     Active Substance: TOCILIZUMAB
     Indication: Cytokine release syndrome
     Dosage: TIME INTERVAL: AS NECESSARY: DOSAGE TEXT: MOST RECENT DOSE OF TOCILIZUMAB (400 MG) PRIOR TO AE 03...
     Route: 042
     Dates: start: 20200805
  83. TOCILIZUMAB [Suspect]
     Active Substance: TOCILIZUMAB
     Indication: Cytokine release syndrome
     Route: 042
  84. TOCILIZUMAB [Suspect]
     Active Substance: TOCILIZUMAB
     Indication: Cytokine release syndrome
     Dosage: BATCH NO : B2090,B2079,B2071
     Route: 065
  85. TOCILIZUMAB [Suspect]
     Active Substance: TOCILIZUMAB
     Indication: Cytokine release syndrome
     Route: 042
  86. TOCILIZUMAB [Suspect]
     Active Substance: TOCILIZUMAB
     Indication: Cytokine release syndrome
     Route: 042
  87. TOCILIZUMAB [Suspect]
     Active Substance: TOCILIZUMAB
     Indication: Cytokine release syndrome
     Dosage: TIME INTERVAL: AS NECESSARY: MOST RECENT DOSE OF TOCILIZUMAB  PRIOR TO AE WAS ON 03/SEP/2020 07:5...
     Route: 042
  88. VINCRISTINE [Suspect]
     Active Substance: VINCRISTINE
     Indication: Follicular lymphoma
     Dosage: DOSAGE TEXT: MOST RECENT DOSE PRIOR TO FEBRILE NEUTROPENIA, ALANINE AMINO TRANSFERASE ELEVATED 1....
     Route: 042
     Dates: start: 20200708
  89. VINCRISTINE [Suspect]
     Active Substance: VINCRISTINE
     Indication: Follicular lymphoma
     Dosage: MOST RECENT DOSE PRIOR TO FEBRILE NEUTROPENIA, ALANINE AMINO TRANSFERASE ELEVATED (52 ML): 29/JUL...
     Route: 042
     Dates: start: 20200729
  90. VINCRISTINE [Suspect]
     Active Substance: VINCRISTINE
     Indication: Follicular lymphoma
     Dosage: BATCH NO : 1.115939876.7
     Route: 042
  91. VINCRISTINE [Suspect]
     Active Substance: VINCRISTINE
     Indication: Follicular lymphoma
     Dosage: BATCH NO : 1.114955804.4
     Route: 042
  92. VINCRISTINE [Suspect]
     Active Substance: VINCRISTINE
     Indication: Follicular lymphoma
     Dosage: MOST RECENT DOSE OF VINCRISTINE (TOTAL VOLUME: 51 ML) PRIOR TO CRS (FIRST EPISODE OF SECOND OCCUR...
     Route: 042
  93. VINCRISTINE [Suspect]
     Active Substance: VINCRISTINE
     Indication: Follicular lymphoma
     Dosage: BATCH NO : 1.117448612.4
     Route: 042
  94. VINCRISTINE [Suspect]
     Active Substance: VINCRISTINE
     Indication: Follicular lymphoma
     Dosage: BATCH NO : 1.113286633.4
     Route: 042
  95. PIPERACILLIN AND TAZOBACTAM [Concomitant]
     Active Substance: PIPERACILLIN SODIUM\TAZOBACTAM SODIUM
     Indication: Cytokine release syndrome
     Dosage: 4.5 G
     Dates: start: 20200903
  96. PIPERACILLIN AND TAZOBACTAM [Concomitant]
     Active Substance: PIPERACILLIN SODIUM\TAZOBACTAM SODIUM
     Indication: Cytokine release syndrome
     Dosage: DURATION: 5 DAYS
     Dates: start: 20200715, end: 20200719
  97. ACYCLOVIR [Concomitant]
     Active Substance: ACYCLOVIR
     Indication: Antiviral prophylaxis
     Dosage: DURATION: 60 DAYS
     Dates: start: 20200608, end: 20200806
  98. ACYCLOVIR [Concomitant]
     Active Substance: ACYCLOVIR
     Indication: Antiviral prophylaxis
     Dosage: 200 MG
     Dates: start: 20200708
  99. CALCIUM CARBONATE\CHOLECALCIFEROL [Concomitant]
     Active Substance: CALCIUM CARBONATE\CHOLECALCIFEROL
     Indication: Osteoporosis
     Dates: start: 2018
  100. DOXORUBICIN HYDROCHLORIDE [Suspect]
     Active Substance: DOXORUBICIN HYDROCHLORIDE
     Indication: Diffuse large B-cell lymphoma
     Dosage: BATCH/LOT NUMBER: 1.114955805.4
     Route: 065
     Dates: start: 20200708
  101. PIPERACILLIN SODIUM\TAZOBACTAM SODIUM [Concomitant]
     Active Substance: PIPERACILLIN SODIUM\TAZOBACTAM SODIUM
     Indication: Cytokine release syndrome
     Dosage: 4.5 G
     Dates: start: 20200903
  102. ACECLOFENAC [Concomitant]
     Active Substance: ACECLOFENAC
     Dosage: UNK
     Dates: start: 202003

REACTIONS (11)
  - Cytokine release syndrome [Recovered/Resolved]
  - Off label use [Unknown]
  - Alanine aminotransferase increased [Recovered/Resolved]
  - Cytokine release syndrome [Recovered/Resolved]
  - Febrile neutropenia [Recovered/Resolved]
  - Neutropenia [Recovered/Resolved]
  - Neutropenia [Recovered/Resolved]
  - Neutropenia [Recovered/Resolved]
  - Alanine aminotransferase increased [Recovered/Resolved]
  - Pyrexia [Recovered/Resolved]
  - Product use in unapproved indication [Unknown]

NARRATIVE: CASE EVENT DATE: 20200714
